FAERS Safety Report 8986213 (Version 3)
Quarter: 2014Q4

REPORT INFORMATION
  Report Type: Report from Study
  Country: DE (occurrence: DE)
  Receive Date: 20121226
  Receipt Date: 20141202
  Transmission Date: 20150529
  Serious: Yes (Death, Hospitalization, Disabling)
  Sender: FDA-Public Use
  Company Number: DE-TEVA-377613USA

PATIENT
  Age: 68 Year
  Sex: Male
  Weight: 83 kg

DRUGS (18)
  1. TREANDA [Suspect]
     Active Substance: BENDAMUSTINE HYDROCHLORIDE
     Dosage: CYCLE 2
     Route: 042
     Dates: start: 200909
  2. TREANDA [Suspect]
     Active Substance: BENDAMUSTINE HYDROCHLORIDE
     Indication: NON-HODGKIN^S LYMPHOMA
     Dosage: CYCLE 1
     Route: 042
     Dates: start: 20090814
  3. RITUXIMAB [Suspect]
     Active Substance: RITUXIMAB
     Dosage: CYCLE 14
     Route: 042
     Dates: start: 20091012, end: 20091014
  4. RITUXIMAB [Suspect]
     Active Substance: RITUXIMAB
     Dosage: CYCLE 4
     Route: 042
     Dates: start: 20091111
  5. TREANDA [Suspect]
     Active Substance: BENDAMUSTINE HYDROCHLORIDE
     Dosage: CYCLE 3
     Route: 042
     Dates: start: 20091012, end: 20091014
  6. TREANDA [Suspect]
     Active Substance: BENDAMUSTINE HYDROCHLORIDE
     Dosage: CYCLE 4
     Route: 042
     Dates: start: 20091111
  7. TREANDA [Suspect]
     Active Substance: BENDAMUSTINE HYDROCHLORIDE
     Dosage: CYCLE 5
     Route: 042
     Dates: start: 20091209
  8. RITUXIMAB [Suspect]
     Active Substance: RITUXIMAB
     Dosage: CYCLE 7
     Route: 042
     Dates: start: 20100212
  9. RITUXIMAB [Suspect]
     Active Substance: RITUXIMAB
     Dosage: CYCLE 8
     Route: 042
     Dates: start: 20100312
  10. PANTOPRAZOLE [Concomitant]
     Active Substance: PANTOPRAZOLE SODIUM
  11. TREANDA [Suspect]
     Active Substance: BENDAMUSTINE HYDROCHLORIDE
     Dosage: CYCLE 6
     Route: 042
     Dates: start: 20100112, end: 20100113
  12. RITUXIMAB [Suspect]
     Active Substance: RITUXIMAB
     Indication: NON-HODGKIN^S LYMPHOMA
     Dosage: CYCLE 1
     Route: 042
     Dates: start: 20090813, end: 20100312
  13. RITUXIMAB [Suspect]
     Active Substance: RITUXIMAB
     Dosage: CYCLE 5
     Route: 042
     Dates: start: 20091209
  14. LEVOTHYROXINE [Concomitant]
     Active Substance: LEVOTHYROXINE
  15. DIMETINDENE MALEATE [Concomitant]
     Active Substance: DIMETHINDENE MALEATE
     Dates: start: 20090824, end: 20090917
  16. RITUXIMAB [Suspect]
     Active Substance: RITUXIMAB
     Dosage: CYCLE 2
     Route: 042
     Dates: start: 200909
  17. RITUXIMAB [Suspect]
     Active Substance: RITUXIMAB
     Dosage: CYCLE 6
     Route: 042
     Dates: start: 20100112
  18. CAPTOPRIL. [Concomitant]
     Active Substance: CAPTOPRIL
     Dates: start: 20090824

REACTIONS (4)
  - Thrombocytopenia [Recovered/Resolved]
  - Leukopenia [Recovered/Resolved]
  - Death [Fatal]
  - Progressive multifocal leukoencephalopathy [Not Recovered/Not Resolved]

NARRATIVE: CASE EVENT DATE: 20100619
